FAERS Safety Report 19813422 (Version 1)
Quarter: 2021Q3

REPORT INFORMATION
  Report Type: Spontaneous
  Country: US (occurrence: US)
  Receive Date: 20210909
  Receipt Date: 20210909
  Transmission Date: 20211014
  Serious: No
  Sender: FDA-Public Use
  Company Number: US-PERRIGO-21US007934

PATIENT
  Age: 56 Year
  Sex: Female
  Weight: 47.62 kg

DRUGS (4)
  1. PRAVASTATIN. [Concomitant]
     Active Substance: PRAVASTATIN
     Indication: BLOOD CHOLESTEROL INCREASED
     Dosage: UNKNOWN, UNKNOWN
     Route: 065
  2. MINOXIDIL. [Suspect]
     Active Substance: MINOXIDIL
     Indication: ALOPECIA
     Dosage: UNKNOWN, SINGLE
     Route: 048
     Dates: start: 20210609, end: 20210609
  3. LEXAPRO [Concomitant]
     Active Substance: ESCITALOPRAM OXALATE
     Indication: ANXIETY
     Dosage: UNKNOWN, UNKNOWN
     Route: 065
  4. MINOXIDIL. [Suspect]
     Active Substance: MINOXIDIL
     Indication: ACCIDENTAL EXPOSURE TO PRODUCT
     Dosage: 1 ML, BID
     Route: 061
     Dates: start: 202102

REACTIONS (3)
  - Expired product administered [Unknown]
  - Drug ineffective [Unknown]
  - Accidental exposure to product [Recovered/Resolved]

NARRATIVE: CASE EVENT DATE: 202102
